FAERS Safety Report 13013644 (Version 1)
Quarter: 2016Q4

REPORT INFORMATION
  Report Type: Report from Study
  Country: US (occurrence: US)
  Receive Date: 20161209
  Receipt Date: 20161209
  Transmission Date: 20170207
  Serious: Yes (Life-Threatening, Hospitalization)
  Sender: FDA-Public Use
  Company Number: US-JNJFOC-20161207677

PATIENT
  Age: 50 Year
  Sex: Female
  Weight: 75.3 kg

DRUGS (2)
  1. INSULIN [Concomitant]
     Active Substance: INSULIN NOS
     Route: 065
  2. INVOKANA [Suspect]
     Active Substance: CANAGLIFLOZIN
     Indication: TYPE 2 DIABETES MELLITUS
     Route: 048
     Dates: start: 2013, end: 201610

REACTIONS (8)
  - Sepsis [Recovered/Resolved]
  - Vomiting [Unknown]
  - Intestinal obstruction [Recovered/Resolved]
  - Blood glucose increased [Not Recovered/Not Resolved]
  - Dyspnoea [Recovered/Resolved]
  - Seizure [Recovered/Resolved]
  - Myocardial infarction [Unknown]
  - Pneumonia [Unknown]

NARRATIVE: CASE EVENT DATE: 20160924
